FAERS Safety Report 25412676 (Version 1)
Quarter: 2025Q2

REPORT INFORMATION
  Report Type: Spontaneous
  Country: US (occurrence: None)
  Receive Date: 20250606
  Receipt Date: 20250606
  Transmission Date: 20250716
  Serious: Yes (Death)
  Sender: FDA-CTU
  Company Number: None

PATIENT
  Age: 83 Year
  Sex: Male
  Weight: 50.4 kg

DRUGS (19)
  1. LENALIDOMIDE [Suspect]
     Active Substance: LENALIDOMIDE
     Indication: Plasma cell myeloma
     Dosage: FREQUENCY : DAILY;?
     Route: 048
     Dates: start: 20250328, end: 20250515
  2. acetaminophen 325 mg tablet [Concomitant]
  3. AsperFlex (lidocaine) 4 % topical patch [Concomitant]
  4. bisacodyl 10 mg rectal suppository [Concomitant]
  5. FUROSEMIDE [Concomitant]
     Active Substance: FUROSEMIDE
  6. guaifenesin 400 mg tablet [Concomitant]
  7. MIRTAZAPINE [Concomitant]
     Active Substance: MIRTAZAPINE
  8. pantoprazole 40 mg tablet,delayed release [Concomitant]
  9. PREDNISONE [Concomitant]
     Active Substance: PREDNISONE
  10. DEXAMETHASONE [Concomitant]
     Active Substance: DEXAMETHASONE
  11. FINASTERIDE [Concomitant]
     Active Substance: FINASTERIDE
  12. AMLODIPINE BESYLATE [Concomitant]
     Active Substance: AMLODIPINE BESYLATE
  13. aspirin 81 mg tablet,delayed release [Concomitant]
  14. fentanyl 25 mcg/hr transdermal patch [Concomitant]
  15. omeprazole 20 mg tablet,delayed release [Concomitant]
  16. Pepcid 20 mg tablet [Concomitant]
  17. ROSUVASTATIN [Concomitant]
     Active Substance: ROSUVASTATIN
  18. TAMSULOSIN HYDROCHLORIDE [Concomitant]
     Active Substance: TAMSULOSIN HYDROCHLORIDE
  19. TRAZODONE [Concomitant]
     Active Substance: TRAZODONE HYDROCHLORIDE

REACTIONS (1)
  - Death [None]

NARRATIVE: CASE EVENT DATE: 20250515
